FAERS Safety Report 9797133 (Version 13)
Quarter: 2015Q4

REPORT INFORMATION
  Report Type: Report from Study
  Country: CA (occurrence: CA)
  Receive Date: 20140106
  Receipt Date: 20151009
  Transmission Date: 20160305
  Serious: Yes (Other)
  Sender: FDA-Public Use
  Company Number: CA-ROCHE-1151669

PATIENT
  Age: 44 Year
  Sex: Male
  Weight: 155.58 kg

DRUGS (19)
  1. ACTEMRA [Suspect]
     Active Substance: TOCILIZUMAB
     Indication: EOSINOPHILIC FASCIITIS
     Route: 042
     Dates: start: 20131113
  2. ACETAMINOPHEN. [Concomitant]
     Active Substance: ACETAMINOPHEN
     Indication: PREMEDICATION
     Route: 048
     Dates: start: 20121029, end: 20121112
  3. CYMBALTA [Concomitant]
     Active Substance: DULOXETINE HYDROCHLORIDE
  4. FOLIC ACID. [Concomitant]
     Active Substance: FOLIC ACID
  5. HUMULIN NOS [Concomitant]
     Active Substance: INSULIN HUMAN
  6. CETIRIZINE [Concomitant]
     Active Substance: CETIRIZINE HYDROCHLORIDE
  7. ACTEMRA [Suspect]
     Active Substance: TOCILIZUMAB
     Route: 042
     Dates: start: 20150415
  8. METHOTREXATE [Concomitant]
     Active Substance: METHOTREXATE
  9. LYRICA [Concomitant]
     Active Substance: PREGABALIN
  10. AMLODIPINE [Concomitant]
     Active Substance: AMLODIPINE BESYLATE
  11. RITUXAN [Suspect]
     Active Substance: RITUXIMAB
     Indication: EOSINOPHILIC FASCIITIS
     Route: 042
     Dates: start: 20121029, end: 20121112
  12. ACTEMRA [Suspect]
     Active Substance: TOCILIZUMAB
     Route: 042
     Dates: start: 20141029
  13. COVERSYL [Concomitant]
     Active Substance: PERINDOPRIL
  14. GLICLAZIDE [Concomitant]
     Active Substance: GLICLAZIDE
  15. EFFEXOR [Concomitant]
     Active Substance: VENLAFAXINE HYDROCHLORIDE
  16. METHYLPREDNISOLONE. [Concomitant]
     Active Substance: METHYLPREDNISOLONE
     Indication: PREMEDICATION
     Route: 042
     Dates: start: 20121029, end: 20121112
  17. METFORMIN [Concomitant]
     Active Substance: METFORMIN HYDROCHLORIDE
  18. PREDNISONE. [Concomitant]
     Active Substance: PREDNISONE
  19. DIPHENHYDRAMINE HCL [Concomitant]
     Active Substance: DIPHENHYDRAMINE HYDROCHLORIDE
     Indication: PREMEDICATION
     Route: 048
     Dates: start: 20121029, end: 20121112

REACTIONS (7)
  - Infusion related reaction [Recovered/Resolved]
  - Drug ineffective [Unknown]
  - Infusion related reaction [Unknown]
  - Lymphadenopathy [Not Recovered/Not Resolved]
  - Blood pressure increased [Unknown]
  - Drug dose omission [Unknown]
  - Off label use [Unknown]

NARRATIVE: CASE EVENT DATE: 201312
